FAERS Safety Report 21602207 (Version 1)
Quarter: 2022Q4

REPORT INFORMATION
  Report Type: Report from Study
  Country: DE (occurrence: DE)
  Receive Date: 20221116
  Receipt Date: 20221116
  Transmission Date: 20230112
  Serious: Yes (Hospitalization)
  Sender: FDA-Public Use
  Company Number: DE-BRISTOL-MYERS SQUIBB COMPANY-2022-138167

PATIENT
  Age: 51 Year
  Sex: Male
  Weight: 68 kg

DRUGS (9)
  1. NIVOLUMAB [Suspect]
     Active Substance: NIVOLUMAB
     Indication: Gastrooesophageal cancer
     Route: 042
     Dates: start: 20221006, end: 20221103
  2. REGORAFENIB [Suspect]
     Active Substance: REGORAFENIB
     Indication: Gastrooesophageal cancer
     Route: 048
     Dates: start: 20221006, end: 20221114
  3. MCP [Concomitant]
     Active Substance: METOCLOPRAMIDE HYDROCHLORIDE
     Indication: Adverse event
     Route: 042
     Dates: start: 20221010
  4. FENTANYL [Concomitant]
     Active Substance: FENTANYL
     Indication: Adverse event
     Dosage: MATRIX PATCH IOEG/H
     Route: 062
     Dates: start: 20221010
  5. PANTOZOL [Concomitant]
     Active Substance: PANTOPRAZOLE SODIUM
     Indication: Adverse event
     Route: 048
     Dates: start: 20221010, end: 20221014
  6. METAMIZOLE [Concomitant]
     Active Substance: METAMIZOLE
     Indication: Gastrooesophageal cancer
     Dosage: RATIO ?500MG/ML
     Route: 048
     Dates: start: 20221010
  7. MSI [Concomitant]
     Active Substance: MORPHINE SULFATE
     Indication: Gastrooesophageal cancer
     Dosage: MSI MUNDIPHARMA
     Route: 048
     Dates: start: 20221010, end: 20221014
  8. IMODIUM [Concomitant]
     Active Substance: LOPERAMIDE HYDROCHLORIDE
     Indication: Adverse event
     Dosage: IMODIUM LINGUAL
     Route: 048
     Dates: start: 20221010, end: 20221014
  9. POLYETHYLENE GLYCOL 3350 [Concomitant]
     Active Substance: POLYETHYLENE GLYCOL 3350
     Indication: Adverse event
     Route: 048
     Dates: start: 20221010

REACTIONS (1)
  - Breast pain [Unknown]

NARRATIVE: CASE EVENT DATE: 20221108
